FAERS Safety Report 9142047 (Version 2)
Quarter: 2013Q2

REPORT INFORMATION
  Report Type: Spontaneous
  Country: US (occurrence: US)
  Receive Date: 20130305
  Receipt Date: 20130404
  Transmission Date: 20140414
  Serious: No
  Sender: FDA-Public Use
  Company Number: US-AMGEN-USASP2013012449

PATIENT
  Age: 29 Year
  Sex: Female

DRUGS (1)
  1. ENBREL [Suspect]
     Indication: RHEUMATOID ARTHRITIS
     Dosage: UNK, QWK
     Dates: start: 20120510

REACTIONS (4)
  - Premature menopause [Not Recovered/Not Resolved]
  - Flank pain [Not Recovered/Not Resolved]
  - Urine abnormality [Not Recovered/Not Resolved]
  - Skin odour abnormal [Not Recovered/Not Resolved]
